FAERS Safety Report 7425466-4 (Version None)
Quarter: 2011Q2

REPORT INFORMATION
  Report Type: 
  Country: None (occurrence: None)
  Receive Date: 20110418
  Receipt Date: 20110418
  Transmission Date: 20111010
  Serious: No
  Sender: FDA-Public Use
  Company Number: None

PATIENT
  Sex: Male
  Weight: 86.1834 kg

DRUGS (2)
  1. PRILOSEC [Suspect]
  2. LANSOPRAZOLE [Suspect]

REACTIONS (1)
  - GASTROOESOPHAGEAL REFLUX DISEASE [None]
